FAERS Safety Report 8055879-1 (Version None)
Quarter: 2011Q4

REPORT INFORMATION
  Report Type: 
  Country: None (occurrence: None)
  Receive Date: 20111216
  Receipt Date: 20101108
  Transmission Date: 20120403
  Serious: Yes (Other)
  Sender: FDA-Public Use
  Company Number: 253134USA

PATIENT
  Age: 27 Year
  Sex: Female

DRUGS (1)
  1. PARAGARD T 380A [Suspect]
     Indication: CONTRACEPTION
     Dosage: .U.
     Dates: start: 20091210, end: 20101014

REACTIONS (2)
  - VAGINAL HAEMORRHAGE [None]
  - ABDOMINAL PAIN [None]
